FAERS Safety Report 13720637 (Version 1)
Quarter: 2017Q3

REPORT INFORMATION
  Report Type: Spontaneous
  Country: US (occurrence: US)
  Receive Date: 20170706
  Receipt Date: 20170706
  Transmission Date: 20171127
  Serious: Yes (Hospitalization)
  Sender: FDA-Public Use
  Company Number: US-BEH-2017081793

PATIENT
  Age: 86 Year
  Sex: Female
  Weight: 69.39 kg

DRUGS (26)
  1. HYDRALAZINE [Concomitant]
     Active Substance: HYDRALAZINE HYDROCHLORIDE
  2. TOLTERODINE [Concomitant]
     Active Substance: TOLTERODINE
  3. AMLODIPINE [Concomitant]
     Active Substance: AMLODIPINE BESYLATE
  4. HYDROCHLOROTHIAZIDE. [Concomitant]
     Active Substance: HYDROCHLOROTHIAZIDE
  5. ALLOPURINOL. [Concomitant]
     Active Substance: ALLOPURINOL
  6. OMEPRAZOLE. [Concomitant]
     Active Substance: OMEPRAZOLE
  7. ZYRTEC [Concomitant]
     Active Substance: CETIRIZINE HYDROCHLORIDE
  8. ACETAMINOPHEN. [Concomitant]
     Active Substance: ACETAMINOPHEN
  9. DIPHENHYDRAMINE. [Concomitant]
     Active Substance: DIPHENHYDRAMINE
  10. DULOXETINE. [Concomitant]
     Active Substance: DULOXETINE
  11. HIZENTRA [Suspect]
     Active Substance: HUMAN IMMUNOGLOBULIN G
     Dosage: UNK
     Route: 058
  12. NITROFURANTOIN MONO/MAC [Concomitant]
     Active Substance: NITROFURANTOIN\NITROFURANTOIN MONOHYDRATE
  13. LMX                                /00033401/ [Concomitant]
  14. ASMANEX [Concomitant]
     Active Substance: MOMETASONE FUROATE
  15. METAMUCIL [Concomitant]
     Active Substance: PLANTAGO SEED
  16. EPIPEN [Concomitant]
     Active Substance: EPINEPHRINE
  17. LEVOTHYROXINE. [Concomitant]
     Active Substance: LEVOTHYROXINE
  18. HIZENTRA [Suspect]
     Active Substance: HUMAN IMMUNOGLOBULIN G
     Indication: IMMUNODEFICIENCY COMMON VARIABLE
     Dosage: 12 G, QW
     Route: 058
     Dates: start: 20170117
  19. CARVEDILOL. [Concomitant]
     Active Substance: CARVEDILOL
  20. CULTURELLE [Concomitant]
     Active Substance: LACTOBACILLUS RHAMNOSUS
  21. ROPINIROLE. [Concomitant]
     Active Substance: ROPINIROLE
  22. IRBESARTAN. [Concomitant]
     Active Substance: IRBESARTAN
  23. TYLENOL EXTRA STRENGTH [Concomitant]
     Active Substance: ACETAMINOPHEN
  24. MONTELUKAST [Concomitant]
     Active Substance: MONTELUKAST SODIUM
  25. MULTIVITAMINS [Concomitant]
     Active Substance: VITAMINS
  26. VITAMIN D3 [Concomitant]
     Active Substance: CHOLECALCIFEROL

REACTIONS (2)
  - Atrial fibrillation [Unknown]
  - Urinary tract infection [Unknown]

NARRATIVE: CASE EVENT DATE: 20170627
